FAERS Safety Report 5128525-4 (Version None)
Quarter: 2006Q4

REPORT INFORMATION
  Report Type: 
  Country: None (occurrence: None)
  Receive Date: 20061017
  Receipt Date: 20061012
  Transmission Date: 20070319
  Serious: Yes (Hospitalization)
  Sender: FDA-Public Use
  Company Number: IT-ROCHE-466906

PATIENT
  Age: 79 Year
  Sex: Female

DRUGS (1)
  1. ROCEPHIN [Suspect]
     Indication: PYREXIA
     Dosage: FORM REPORTED AS VIAL.
     Route: 030
     Dates: start: 20060630, end: 20060707

REACTIONS (1)
  - VASCULITIS [None]
